FAERS Safety Report 10764149 (Version 7)
Quarter: 2015Q2

REPORT INFORMATION
  Report Type: Report from Study
  Country: CA (occurrence: CA)
  Receive Date: 20150204
  Receipt Date: 20150605
  Transmission Date: 20150821
  Serious: Yes (Hospitalization)
  Sender: FDA-Public Use
  Company Number: CA-ROCHE-1138664

PATIENT
  Age: 67 Year
  Sex: Female
  Weight: 73.6 kg

DRUGS (13)
  1. FOLIC ACID. [Concomitant]
     Active Substance: FOLIC ACID
  2. GRAVOL [Concomitant]
     Active Substance: DIMENHYDRINATE
     Indication: INSOMNIA
     Route: 065
  3. METHOTREXATE [Concomitant]
     Active Substance: METHOTREXATE
  4. ACTEMRA [Suspect]
     Active Substance: TOCILIZUMAB
     Indication: RHEUMATOID ARTHRITIS
     Dosage: ON HOLD
     Route: 042
     Dates: start: 20120306, end: 20150105
  5. ADALAT [Concomitant]
     Active Substance: NIFEDIPINE
  6. MORPHINE [Concomitant]
     Active Substance: MORPHINE
  7. HYDROCHLOROTHIAZIDE. [Concomitant]
     Active Substance: HYDROCHLOROTHIAZIDE
  8. ACTEMRA [Suspect]
     Active Substance: TOCILIZUMAB
     Dosage: UNKNOWN DOSAGE
     Route: 042
     Dates: start: 20120214
  9. CELEBREX [Concomitant]
     Active Substance: CELECOXIB
  10. WELLBUTRIN [Concomitant]
     Active Substance: BUPROPION HYDROCHLORIDE
  11. EFFEXOR [Concomitant]
     Active Substance: VENLAFAXINE HYDROCHLORIDE
  12. DOMPERIDONE [Concomitant]
     Active Substance: DOMPERIDONE
  13. STEMETIL [Concomitant]
     Active Substance: PROCHLORPERAZINE MALEATE

REACTIONS (13)
  - Thrombosis [Unknown]
  - Tooth extraction [Unknown]
  - White blood cell count decreased [Unknown]
  - Blood potassium decreased [Unknown]
  - Blood magnesium decreased [Unknown]
  - Weight increased [Not Recovered/Not Resolved]
  - Hair colour changes [Not Recovered/Not Resolved]
  - Alopecia [Not Recovered/Not Resolved]
  - Rheumatoid arthritis [Not Recovered/Not Resolved]
  - Gingivitis [Not Recovered/Not Resolved]
  - Red blood cell count increased [Unknown]
  - International normalised ratio increased [Unknown]
  - Weight decreased [Not Recovered/Not Resolved]

NARRATIVE: CASE EVENT DATE: 201412
